FAERS Safety Report 6752269-6 (Version None)
Quarter: 2010Q2

REPORT INFORMATION
  Report Type: 
  Country: None (occurrence: None)
  Receive Date: 20100602
  Receipt Date: 20100527
  Transmission Date: 20101027
  Serious: Yes (Other)
  Sender: FDA-Public Use
  Company Number: GB-JNJFOC-20100600135

PATIENT

DRUGS (2)
  1. HALOPERIDOL DECANOATE [Suspect]
     Indication: BIPOLAR DISORDER
     Route: 030
  2. CARBAMAZEPINE [Concomitant]
     Indication: BIPOLAR DISORDER
     Route: 065

REACTIONS (1)
  - WEIGHT INCREASED [None]
